FAERS Safety Report 11265453 (Version 1)
Quarter: 2015Q3

REPORT INFORMATION
  Report Type: Spontaneous
  Country: US (occurrence: None)
  Receive Date: 20150710
  Receipt Date: 20150710
  Transmission Date: 20151125
  Serious: No
  Sender: FDA-Public Use
  Company Number: None

PATIENT
  Age: 38 Year
  Sex: Female
  Weight: 135.17 kg

DRUGS (4)
  1. GUANFACINE. [Concomitant]
     Active Substance: GUANFACINE
  2. LAMOTRIGINE. [Suspect]
     Active Substance: LAMOTRIGINE
     Indication: AFFECTIVE DISORDER
     Dosage: 2 PILLS, ONCE DAILY, TAKEN BY MOUTH
     Route: 048
  3. LAMOTRIGINE. [Concomitant]
     Active Substance: LAMOTRIGINE
  4. ASPIRIN. [Concomitant]
     Active Substance: ASPIRIN

REACTIONS (11)
  - Muscle spasms [None]
  - Alopecia [None]
  - Pituitary tumour [None]
  - Affect lability [None]
  - Headache [None]
  - Mental impairment [None]
  - Polycystic ovaries [None]
  - Menstrual disorder [None]
  - Hypothyroidism [None]
  - Vertigo [None]
  - Sunburn [None]

NARRATIVE: CASE EVENT DATE: 20150705
